FAERS Safety Report 8087979-4 (Version None)
Quarter: 2012Q1

REPORT INFORMATION
  Report Type: 
  Country: None (occurrence: None)
  Receive Date: 20120130
  Receipt Date: 20120120
  Transmission Date: 20120608
  Serious: Yes (Hospitalization)
  Sender: FDA-Public Use
  Company Number: US-ASTRAZENECA-2011SE71982

PATIENT
  Age: 59 Year
  Sex: Female

DRUGS (1)
  1. ZOMIG [Suspect]
     Route: 048

REACTIONS (5)
  - RENAL DISORDER [None]
  - RESPIRATORY DISORDER [None]
  - LIVER DISORDER [None]
  - DRUG DOSE OMISSION [None]
  - MIGRAINE [None]
